FAERS Safety Report 5814346-3 (Version None)
Quarter: 2008Q3

REPORT INFORMATION
  Report Type: 
  Country: None (occurrence: None)
  Receive Date: 20080715
  Receipt Date: 20070207
  Transmission Date: 20090109
  Serious: No
  Sender: FDA-Public Use
  Company Number: TPA2007A00057

PATIENT
  Age: 59 Year
  Sex: Female
  Weight: 38.5557 kg

DRUGS (10)
  1. ROZEREM [Suspect]
     Indication: INSOMNIA
     Dosage: 8MG, QHS, PER ORAL; 
8 MG, 1/2 TABLET QHS, PER ORAL ;  8 MG, 1/4 TABLET QHS, PER ORAL ;   8 MG, QHS,
     Route: 048
     Dates: end: 20070108
  2. ROZEREM [Suspect]
     Indication: INSOMNIA
     Dosage: 8MG, QHS, PER ORAL; 
8 MG, 1/2 TABLET QHS, PER ORAL ;  8 MG, 1/4 TABLET QHS, PER ORAL ;   8 MG, QHS,
     Route: 048
     Dates: end: 20080101
  3. ROZEREM [Suspect]
     Indication: INSOMNIA
     Dosage: 8MG, QHS, PER ORAL; 
8 MG, 1/2 TABLET QHS, PER ORAL ;  8 MG, 1/4 TABLET QHS, PER ORAL ;   8 MG, QHS,
     Route: 048
     Dates: start: 20061201
  4. ROZEREM [Suspect]
     Indication: INSOMNIA
     Dosage: 8MG, QHS, PER ORAL; 
8 MG, 1/2 TABLET QHS, PER ORAL ;  8 MG, 1/4 TABLET QHS, PER ORAL ;   8 MG, QHS,
     Route: 048
     Dates: start: 20080101
  5. SEROQUEL [Concomitant]
  6. KLONOPIN [Concomitant]
  7. LITHIUM CARBONATE [Concomitant]
  8. DEPAKOTE [Concomitant]
  9. IMITREX [Concomitant]
  10. VICODIN [Concomitant]

REACTIONS (7)
  - EARLY MORNING AWAKENING [None]
  - EYE PAIN [None]
  - FATIGUE [None]
  - MIDDLE INSOMNIA [None]
  - MIGRAINE [None]
  - SLEEP DISORDER [None]
  - SOMNOLENCE [None]
